FAERS Safety Report 17843974 (Version 1)
Quarter: 2020Q2

REPORT INFORMATION
  Report Type: Spontaneous
  Country: CN (occurrence: CN)
  Receive Date: 20200601
  Receipt Date: 20200601
  Transmission Date: 20200714
  Serious: Yes (Other)
  Sender: FDA-Public Use
  Company Number: CN-ROCHE-2606279

PATIENT
  Age: 61 Year
  Sex: Male

DRUGS (9)
  1. HERCEPTIN [Suspect]
     Active Substance: TRASTUZUMAB
     Indication: GASTRIC CANCER
     Dosage: 2 CYCLES
     Route: 048
     Dates: start: 20180814
  2. HERCEPTIN [Suspect]
     Active Substance: TRASTUZUMAB
     Dosage: 4 CYCLES
     Route: 048
     Dates: start: 20180926
  3. HERCEPTIN [Suspect]
     Active Substance: TRASTUZUMAB
     Dosage: 4 CYCLES
     Route: 048
     Dates: start: 20190118, end: 20190418
  4. XELODA [Suspect]
     Active Substance: CAPECITABINE
     Dosage: DAY 1-14, 4 CYCLES
     Route: 048
     Dates: start: 20180926
  5. XELODA [Suspect]
     Active Substance: CAPECITABINE
     Indication: GASTRIC CANCER
     Dosage: DAY 1-14, 2CYCLES
     Route: 048
     Dates: start: 20180814
  6. XELODA [Suspect]
     Active Substance: CAPECITABINE
     Dosage: DAY 1-14, 4 CYCLES
     Route: 048
     Dates: start: 20190118, end: 20190418
  7. OXALIPLATIN. [Concomitant]
     Active Substance: OXALIPLATIN
     Indication: GASTRIC CANCER
     Dosage: DAY 1, 2CYCLES
     Route: 065
     Dates: start: 20180814
  8. OXALIPLATIN. [Concomitant]
     Active Substance: OXALIPLATIN
     Dosage: DAY 1, 4 CYCLES
     Route: 065
     Dates: start: 20180926
  9. FLUOROURACIL. [Concomitant]
     Active Substance: FLUOROURACIL
     Indication: GASTRIC CANCER
     Route: 048

REACTIONS (1)
  - Palmar-plantar erythrodysaesthesia syndrome [Unknown]
